FAERS Safety Report 21891519 (Version 1)
Quarter: 2023Q1

REPORT INFORMATION
  Report Type: Spontaneous
  Country: US (occurrence: None)
  Receive Date: 20230120
  Receipt Date: 20230120
  Transmission Date: 20230417
  Serious: Yes (Hospitalization)
  Sender: FDA-Public Use
  Company Number: None

PATIENT
  Age: 74 Year
  Sex: Male
  Weight: 96.6 kg

DRUGS (12)
  1. NIVOLUMAB [Suspect]
     Active Substance: NIVOLUMAB
     Indication: Glioblastoma multiforme
     Dosage: OTHER FREQUENCY : EVERY 28 DAYS;?OTHER ROUTE : INFUSION;?
     Route: 050
     Dates: start: 20190821, end: 20200610
  2. BEVACIZUMAB [Suspect]
     Active Substance: BEVACIZUMAB
     Indication: Glioblastoma multiforme
     Dosage: FREQUENCY : EVERY OTHER WEEK;?OTHER ROUTE : INFUSION;?
     Route: 050
     Dates: start: 20190821, end: 20200610
  3. Brimonidine ophthalmic drops [Concomitant]
  4. timolol ophthalmic drops [Concomitant]
  5. AMLODIPINE [Concomitant]
     Active Substance: AMLODIPINE BESYLATE
  6. ATORVASTATIN [Concomitant]
     Active Substance: ATORVASTATIN
  7. Eye health multivitamin with minerals [Concomitant]
  8. NAPROXEN [Concomitant]
     Active Substance: NAPROXEN
  9. IBUPROFEN [Concomitant]
  10. ECHINACEA [Concomitant]
     Active Substance: ECHINACEA, UNSPECIFIED
  11. ASPIRIN [Concomitant]
     Active Substance: ASPIRIN
  12. LISINOPRIL [Concomitant]
     Active Substance: LISINOPRIL

REACTIONS (1)
  - Encephalopathy [None]

NARRATIVE: CASE EVENT DATE: 20200624
